FAERS Safety Report 4532213-2 (Version None)
Quarter: 2004Q4

REPORT INFORMATION
  Report Type: 
  Country: None (occurrence: None)
  Receive Date: 20041217
  Receipt Date: 20030904
  Transmission Date: 20050328
  Serious: No
  Sender: FDA-Public Use
  Company Number: DE-JNJFOC-20030603932

PATIENT
  Age: 77 Year
  Sex: Female

DRUGS (3)
  1. VERMOX [Suspect]
     Indication: STRONGYLOIDIASIS
     Dosage: SEE IMAGE, ORAL
     Route: 048
     Dates: start: 20030131, end: 20030203
  2. VERMOX [Suspect]
     Indication: STRONGYLOIDIASIS
     Dosage: SEE IMAGE, ORAL
     Route: 048
     Dates: start: 20030131
  3. VERMOX [Suspect]
     Indication: STRONGYLOIDIASIS
     Dosage: SEE IMAGE, ORAL
     Route: 048
     Dates: start: 20030520

REACTIONS (3)
  - DRUG INEFFECTIVE [None]
  - FEAR [None]
  - SUICIDAL IDEATION [None]
